FAERS Safety Report 12779922 (Version 4)
Quarter: 2021Q2

REPORT INFORMATION
  Report Type: Spontaneous
  Country: US (occurrence: US)
  Receive Date: 20160926
  Receipt Date: 20210407
  Transmission Date: 20210716
  Serious: Yes (Hospitalization, Other)
  Sender: FDA-Public Use
  Company Number: US-PFIZER INC-2016447731

PATIENT
  Age: 61 Year
  Sex: Female

DRUGS (1)
  1. XELJANZ [Suspect]
     Active Substance: TOFACITINIB CITRATE
     Indication: RHEUMATOID ARTHRITIS
     Dosage: 5 MG, 2X/DAY (BY MOUTH 2 (TWO) TIMES DAILY)
     Route: 048
     Dates: start: 201405

REACTIONS (5)
  - Muscle spasms [Unknown]
  - Neck pain [Unknown]
  - Condition aggravated [Unknown]
  - Sjogren^s syndrome [Unknown]
  - Chest discomfort [Unknown]

NARRATIVE: CASE EVENT DATE: 20160920
